FAERS Safety Report 4338246-3 (Version None)
Quarter: 2004Q2

REPORT INFORMATION
  Report Type: 
  Country: None (occurrence: None)
  Receive Date: 20040413
  Receipt Date: 20040413
  Transmission Date: 20050107
  Serious: Yes (Life-Threatening, Other)
  Sender: FDA-Public Use
  Company Number: None

PATIENT
  Age: 40 Year
  Sex: Female
  Weight: 120.2032 kg

DRUGS (1)
  1. PAXIL [Suspect]
     Indication: DEPRESSION
     Dosage: 40 MG ONCE DAILY ORAL
     Route: 048
     Dates: end: 20040310

REACTIONS (10)
  - ABNORMAL DREAMS [None]
  - ANOREXIA [None]
  - DEPRESSION [None]
  - DRUG WITHDRAWAL SYNDROME [None]
  - FEELING ABNORMAL [None]
  - IRRITABILITY [None]
  - MOOD SWINGS [None]
  - MYALGIA [None]
  - SUICIDAL IDEATION [None]
  - VISION BLURRED [None]
